FAERS Safety Report 5119225-5 (Version None)
Quarter: 2006Q4

REPORT INFORMATION
  Report Type: 
  Country: None (occurrence: None)
  Receive Date: 20061003
  Receipt Date: 20060927
  Transmission Date: 20070319
  Serious: Yes (Hospitalization)
  Sender: FDA-Public Use
  Company Number: US-AVENTIS-200620083GDDC

PATIENT
  Age: 52 Year
  Sex: Female
  Weight: 143.5 kg

DRUGS (21)
  1. APIDRA [Suspect]
     Indication: DIABETES MELLITUS
     Dosage: FREQUENCY: AFTER MEALS
     Route: 058
     Dates: start: 20051221
  2. LANTUS [Suspect]
     Indication: DIABETES MELLITUS
     Route: 058
     Dates: start: 20051221
  3. BECLOMETHASONE DIPROPIONATE [Concomitant]
     Indication: ASTHMA
     Route: 055
     Dates: start: 20000101
  4. DYNACIRC [Concomitant]
     Indication: HYPERTENSION
     Route: 048
     Dates: start: 20040607
  5. LISINOPRIL [Concomitant]
     Indication: NEPHROPATHY
     Route: 048
     Dates: start: 20031211
  6. STOOL SOFTENER [Concomitant]
     Indication: CONSTIPATION
     Route: 048
     Dates: start: 19990401
  7. SSRI [Concomitant]
     Indication: DEPRESSION
     Route: 048
     Dates: start: 20051201
  8. B12 [Concomitant]
     Indication: ANAEMIA VITAMIN B12 DEFICIENCY
     Route: 030
     Dates: start: 20030101
  9. LIPITOR [Concomitant]
     Indication: HYPERLIPIDAEMIA
     Route: 048
     Dates: start: 20060915
  10. LASIX [Concomitant]
     Indication: OEDEMA PERIPHERAL
     Route: 048
     Dates: start: 20000101, end: 20060104
  11. LASIX [Concomitant]
     Route: 048
     Dates: start: 20060107
  12. ONE-A-DAY [Concomitant]
     Route: 048
     Dates: start: 20041012
  13. VIACTIV [Concomitant]
     Route: 048
     Dates: start: 20041012
  14. MAALOX FAST BLOCKER [Concomitant]
     Indication: GASTROOESOPHAGEAL REFLUX DISEASE
     Dosage: DOSE UNIT: TABLESPOON
     Route: 048
     Dates: start: 20020101
  15. IBUPROFEN [Concomitant]
     Indication: OSTEOARTHRITIS
     Dates: start: 19950101
  16. LOVASTATIN [Concomitant]
     Indication: HYPERLIPIDAEMIA
     Route: 048
     Dates: start: 20060201, end: 20060329
  17. LOVASTATIN [Concomitant]
     Route: 048
     Dates: start: 20060330, end: 20060914
  18. TYLENOL [Concomitant]
     Indication: BACK PAIN
     Route: 048
     Dates: start: 19800101
  19. PROZAC [Concomitant]
     Indication: DEPRESSION
     Route: 048
     Dates: start: 20060419, end: 20060615
  20. PROZAC [Concomitant]
     Route: 048
     Dates: start: 20060617, end: 20060703
  21. PROZAC [Concomitant]
     Route: 048
     Dates: start: 20060703, end: 20060829

REACTIONS (2)
  - CHEST PAIN [None]
  - HYPOGLYCAEMIA [None]
